FAERS Safety Report 4464834-X (Version None)
Quarter: 2004Q3

REPORT INFORMATION
  Report Type: 
  Country: None (occurrence: None)
  Receive Date: 20040929
  Receipt Date: 20040914
  Transmission Date: 20050211
  Serious: Yes (Hospitalization, Other)
  Sender: FDA-Public Use
  Company Number: USA040876551

PATIENT
  Sex: Female

DRUGS (14)
  1. EVISTA [Suspect]
     Indication: OSTEOPOROSIS
     Dosage: 60 MG DAY
     Dates: start: 20021204
  2. AVAPRO [Concomitant]
  3. NORVASC [Concomitant]
  4. ROCALTROL [Concomitant]
  5. ARANESP [Concomitant]
  6. ZOLOFT [Concomitant]
  7. PEPCID [Concomitant]
  8. TUMS ULTRA (CALCIUM CARBONATE) [Concomitant]
  9. MULTIVITAMIN [Concomitant]
  10. ASPIRIN [Concomitant]
  11. PLAVIX [Concomitant]
  12. TYLENOL [Concomitant]
  13. PHAZYME [Concomitant]
  14. ANTIVERT [Concomitant]

REACTIONS (3)
  - CAROTID ARTERY STENOSIS [None]
  - CEREBROVASCULAR ACCIDENT [None]
  - EMBOLISM [None]
